FAERS Safety Report 16647911 (Version 1)
Quarter: 2019Q3

REPORT INFORMATION
  Report Type: Spontaneous
  Country: US (occurrence: US)
  Receive Date: 20190729
  Receipt Date: 20190729
  Transmission Date: 20191004
  Serious: Yes (Hospitalization)
  Sender: FDA-Public Use
  Company Number: None

PATIENT
  Age: 78 Year
  Sex: Male

DRUGS (16)
  1. ALPRAZOLAM TAB 0.5 MG [Concomitant]
  2. ISOSORB MONO TAB 60 MG ER [Concomitant]
  3. CARVEDILOL TAB 3.125 MG [Concomitant]
  4. ALLOPURINOL TAB 100 MG [Concomitant]
  5. TORSEMIDE TAB 20 MG [Concomitant]
  6. PROCRIT [Suspect]
     Active Substance: ERYTHROPOIETIN
     Indication: NEPHROGENIC ANAEMIA
     Dosage: ?          OTHER FREQUENCY:WEEKLY;?
     Route: 058
     Dates: start: 20180919
  7. NITROGLYCERIN SUB 0.4 MG [Concomitant]
  8. AMLODIPINE TAB 5 MG [Concomitant]
  9. HYDRALAZINE TAB 100 MG [Concomitant]
  10. CLOPIDOGREL TAB 75 MG [Concomitant]
  11. ATORVASTATIN TAB 40 MG [Concomitant]
     Active Substance: ATORVASTATIN
  12. BUSPIRONE TAB 5 MG [Concomitant]
  13. QUINAPRIL TAB 20 MG [Concomitant]
  14. SERTRALINE TAB 50 MG [Concomitant]
  15. CLONIDINE TAB 0.3 MG [Concomitant]
  16. FUROSEMIDE TAB 40 MG [Concomitant]

REACTIONS (6)
  - Neck pain [None]
  - Musculoskeletal pain [None]
  - Chest pain [None]
  - Hemiparesis [None]
  - Product dose omission [None]
  - Mobility decreased [None]
